FAERS Safety Report 9253097 (Version 1)
Quarter: 2013Q2

REPORT INFORMATION
  Report Type: Spontaneous
  Country: US (occurrence: US)
  Receive Date: 20130424
  Receipt Date: 20130424
  Transmission Date: 20140414
  Serious: No
  Sender: FDA-Public Use
  Company Number: US-PFIZER INC-2013123633

PATIENT
  Sex: Female

DRUGS (10)
  1. CIPROFLOXACIN [Suspect]
     Dosage: UNK
  2. DILANTIN [Suspect]
     Dosage: UNK
  3. MORPHINE SULFATE [Suspect]
     Dosage: UNK
  4. NORPACE [Suspect]
     Dosage: UNK
  5. BENZYLPENICILLIN POTASSIUM [Suspect]
  6. DEMEROL [Suspect]
     Dosage: UNK
  7. HYDROCODONE [Suspect]
     Dosage: UNK
  8. THIOPENTAL SODIUM [Suspect]
     Dosage: UNK
  9. TALWIN [Suspect]
     Dosage: UNK
  10. CODEINE [Suspect]

REACTIONS (1)
  - Drug hypersensitivity [Unknown]
